FAERS Safety Report 23907627 (Version 1)
Quarter: 2024Q2

REPORT INFORMATION
  Report Type: Spontaneous
  Country: US (occurrence: US)
  Receive Date: 20240528
  Receipt Date: 20240528
  Transmission Date: 20240715
  Serious: Yes (Hospitalization, Other)
  Sender: FDA-Public Use
  Company Number: US-LUPIN PHARMACEUTICALS INC.-2024-04300

PATIENT
  Age: 57 Year
  Sex: Male

DRUGS (2)
  1. SEVELAMER HYDROCHLORIDE [Suspect]
     Active Substance: SEVELAMER HYDROCHLORIDE
     Indication: Hyperphosphataemia
     Dosage: UNK
     Route: 065
  2. CALCITRIOL [Concomitant]
     Active Substance: CALCITRIOL
     Indication: Hyperparathyroidism
     Dosage: UNK
     Route: 065

REACTIONS (4)
  - Lower gastrointestinal haemorrhage [Recovered/Resolved]
  - Ulcer [Unknown]
  - Haematochezia [Unknown]
  - Colitis ischaemic [Unknown]
